FAERS Safety Report 23126870 (Version 1)
Quarter: 2023Q4

REPORT INFORMATION
  Report Type: Spontaneous
  Country: BR (occurrence: BR)
  Receive Date: 20231030
  Receipt Date: 20231030
  Transmission Date: 20240110
  Serious: Yes (Other)
  Sender: FDA-Public Use
  Company Number: BR-SANDOZ-SDZ2023BR047382

PATIENT
  Age: 77 Year
  Sex: Female

DRUGS (3)
  1. AZACITIDINE [Suspect]
     Active Substance: AZACITIDINE
     Indication: Acute myeloid leukaemia
     Dosage: 75 MG/M2
     Route: 065
     Dates: start: 202302
  2. FILGRASTIM [Suspect]
     Active Substance: FILGRASTIM
     Indication: Acute myeloid leukaemia
     Dosage: UNK
     Route: 065
     Dates: start: 202302
  3. VENETOCLAX [Suspect]
     Active Substance: VENETOCLAX
     Indication: Product used for unknown indication
     Dosage: 400 MG EVERY 28 DAYS
     Route: 065
     Dates: start: 202302

REACTIONS (1)
  - Pancytopenia [Unknown]
